FAERS Safety Report 6479639-8 (Version None)
Quarter: 2009Q4

REPORT INFORMATION
  Report Type: 
  Country: None (occurrence: None)
  Receive Date: 20091204
  Receipt Date: 20091204
  Transmission Date: 20100525
  Serious: Yes (Other)
  Sender: FDA-Public Use
  Company Number: None

PATIENT
  Age: 7 Year
  Sex: Female

DRUGS (5)
  1. (METHOTREXATE) [Suspect]
     Indication: POLYARTHRITIS
     Dosage: 10 MG, 1 WEEK, SUBCUTANEOUS
     Route: 058
     Dates: start: 20051004
  2. DIAZEPAM [Concomitant]
     Dates: end: 20070901
  3. METHYLPREDNISOLONE [Concomitant]
  4. PREDNISOLONE [Concomitant]
  5. LEVETIRACETAM [Concomitant]

REACTIONS (1)
  - CONVULSION [None]
